FAERS Safety Report 5371697-7 (Version None)
Quarter: 2007Q2

REPORT INFORMATION
  Report Type: 
  Country: None (occurrence: None)
  Receive Date: 20070627
  Receipt Date: 20070621
  Transmission Date: 20071010
  Serious: Yes (Other)
  Sender: FDA-Public Use
  Company Number: HQWYE775125JUN07

PATIENT
  Age: 55 Year
  Sex: Male
  Weight: 90.8 kg

DRUGS (1)
  1. ADVIL [Suspect]
     Indication: BACK PAIN
     Dosage: 2 TABLETS AT BEDTIME
     Route: 048
     Dates: start: 20070501, end: 20070601

REACTIONS (1)
  - MYOCARDIAL INFARCTION [None]
